FAERS Safety Report 6151401-5 (Version None)
Quarter: 2009Q2

REPORT INFORMATION
  Report Type: 
  Country: None (occurrence: None)
  Receive Date: 20090410
  Receipt Date: 20090403
  Transmission Date: 20091009
  Serious: Yes (Hospitalization)
  Sender: FDA-Public Use
  Company Number: US-BIOGENIDEC-2007BI024736

PATIENT
  Age: 77 Year
  Sex: Female

DRUGS (2)
  1. AVONEX [Suspect]
     Indication: MULTIPLE SCLEROSIS
     Route: 030
     Dates: start: 20010801, end: 20030801
  2. AVONEX [Suspect]
     Route: 030
     Dates: start: 20061112

REACTIONS (4)
  - FEMUR FRACTURE [None]
  - HERNIA [None]
  - HIP FRACTURE [None]
  - OSTEOPOROSIS [None]
